FAERS Safety Report 4660917-X (Version None)
Quarter: 2005Q2

REPORT INFORMATION
  Report Type: 
  Country: None (occurrence: None)
  Receive Date: 20050511
  Receipt Date: 20050502
  Transmission Date: 20051028
  Serious: Yes (Disabling)
  Sender: FDA-Public Use
  Company Number: 200503690

PATIENT
  Age: 72 Year
  Sex: Male

DRUGS (1)
  1. ZYMAR [Suspect]
     Indication: PREOPERATIVE CARE
     Dosage: 1 DROP QID EYE
     Route: 047
     Dates: start: 20050426, end: 20050428

REACTIONS (9)
  - BLINDNESS UNILATERAL [None]
  - CULTURE POSITIVE [None]
  - DRUG INEFFECTIVE [None]
  - ENDOPHTHALMITIS [None]
  - EYE INFECTION BACTERIAL [None]
  - INTRAOCULAR PRESSURE INCREASED [None]
  - PHARMACEUTICAL PRODUCT COMPLAINT [None]
  - PUPILLARY DISORDER [None]
  - STREPTOCOCCAL INFECTION [None]
